FAERS Safety Report 9268281 (Version 1)
Quarter: 2013Q2

REPORT INFORMATION
  Report Type: Spontaneous
  Country: US (occurrence: US)
  Receive Date: 20130502
  Receipt Date: 20130502
  Transmission Date: 20140414
  Serious: Yes (Death)
  Sender: FDA-Public Use
  Company Number: US-ELI_LILLY_AND_COMPANY-US201109007564

PATIENT
  Age: 76 Year
  Sex: Male

DRUGS (4)
  1. FORTEO [Suspect]
     Indication: OSTEOPOROSIS
     Dosage: 20 UG, QD
     Route: 065
     Dates: start: 20110810
  2. FORTEO [Suspect]
     Dosage: 20 UG, QD
     Route: 065
  3. FORTEO [Suspect]
     Dosage: 20 UG, QD
  4. LISINOPRIL [Concomitant]
     Dosage: UNK
     Dates: end: 20110916

REACTIONS (6)
  - Death [Fatal]
  - Hypotension [Unknown]
  - Fall [Not Recovered/Not Resolved]
  - Skeletal injury [Unknown]
  - Myasthenia gravis [Unknown]
  - Balance disorder [Unknown]
